FAERS Safety Report 13389132 (Version 2)
Quarter: 2017Q2

REPORT INFORMATION
  Report Type: Spontaneous
  Country: US (occurrence: US)
  Receive Date: 20170330
  Receipt Date: 20170412
  Transmission Date: 20170830
  Serious: Yes (Other)
  Sender: FDA-Public Use
  Company Number: US-PFIZER INC-2017132059

PATIENT
  Age: 35 Year
  Sex: Female

DRUGS (1)
  1. EPINEPHRINE. [Suspect]
     Active Substance: EPINEPHRINE
     Indication: BIOPSY CERVIX
     Dosage: 8 MG, UNK

REACTIONS (3)
  - Stress cardiomyopathy [Recovered/Resolved]
  - Accidental overdose [Unknown]
  - Cardiogenic shock [Recovered/Resolved]
